FAERS Safety Report 7796819-X (Version None)
Quarter: 2011Q4

REPORT INFORMATION
  Report Type: 
  Country: None (occurrence: None)
  Receive Date: 20111005
  Receipt Date: 20110927
  Transmission Date: 20120403
  Serious: Yes (Hospitalization)
  Sender: FDA-Public Use
  Company Number: PHHY2011US85746

PATIENT
  Age: 70 Year
  Sex: Female

DRUGS (2)
  1. WARFARIN SODIUM [Concomitant]
  2. ENOXAPARIN [Suspect]

REACTIONS (5)
  - ABDOMINAL WALL HAEMATOMA [None]
  - URINARY RETENTION [None]
  - ABDOMINAL COMPARTMENT SYNDROME [None]
  - ABDOMINAL PAIN [None]
  - TACHYCARDIA [None]
